FAERS Safety Report 19563842 (Version 3)
Quarter: 2024Q1

REPORT INFORMATION
  Report Type: Spontaneous
  Country: FR (occurrence: None)
  Receive Date: 20210714
  Receipt Date: 20240201
  Transmission Date: 20240410
  Serious: Yes (Other)
  Sender: FDA-Public Use
  Company Number: 2021A581677

PATIENT
  Age: 28 Year
  Sex: Female
  Weight: 60 kg

DRUGS (3)
  1. ESOMEPRAZOLE [Suspect]
     Active Substance: ESOMEPRAZOLE
     Indication: Product used for unknown indication
     Dosage: UNK
     Route: 048
     Dates: start: 20210318
  2. COMIRNATY (TOZINAMERAN) [Suspect]
     Active Substance: TOZINAMERAN
     Indication: Product used for unknown indication
     Dosage: 1 DF(TOTAL, D1)1.0DF UNKNOWN
     Route: 030
     Dates: start: 20210323, end: 20210323
  3. COMIRNATY (TOZINAMERAN) [Suspect]
     Active Substance: TOZINAMERAN
     Indication: Product used for unknown indication
     Dosage: 1 DF(TOTAL, D2)1.0DF UNKNOWN
     Route: 030
     Dates: start: 20210417, end: 20210417

REACTIONS (2)
  - Anembryonic gestation [Recovered/Resolved]
  - Exposure during pregnancy [Unknown]

NARRATIVE: CASE EVENT DATE: 20210428
